FAERS Safety Report 5291313-2 (Version None)
Quarter: 2007Q2

REPORT INFORMATION
  Report Type: 
  Country: None (occurrence: None)
  Receive Date: 20070409
  Receipt Date: 20070330
  Transmission Date: 20071010
  Serious: Yes (Other)
  Sender: FDA-Public Use
  Company Number: JP-PFIZER INC-2007026571

PATIENT
  Age: 30 Year

DRUGS (3)
  1. GABAPEN [Suspect]
     Indication: PARTIAL SEIZURES
     Dosage: DAILY DOSE:1800MG
     Route: 048
  2. PHENOBARBITAL TAB [Concomitant]
  3. LAXATIVES [Concomitant]

REACTIONS (1)
  - EPILEPSY [None]
